FAERS Safety Report 4285108-6 (Version None)
Quarter: 2004Q1

REPORT INFORMATION
  Report Type: 
  Country: None (occurrence: None)
  Receive Date: 20040204
  Receipt Date: 20040122
  Transmission Date: 20041129
  Serious: Yes (Hospitalization, Other)
  Sender: FDA-Public Use
  Company Number: US-GLAXOSMITHKLINE-A0496012A

PATIENT
  Age: 1 Year

DRUGS (1)
  1. WELLBUTRIN SR [Suspect]
     Route: 048

REACTIONS (4)
  - ACCIDENTAL OVERDOSE [None]
  - AGITATION [None]
  - GRAND MAL CONVULSION [None]
  - METABOLIC ACIDOSIS [None]
